FAERS Safety Report 24048229 (Version 8)
Quarter: 2025Q3

REPORT INFORMATION
  Report Type: Report from Study
  Country: US (occurrence: US)
  Receive Date: 20240704
  Receipt Date: 20250730
  Transmission Date: 20251021
  Serious: Yes (Hospitalization, Other)
  Sender: TAKEDA
  Company Number: US-TAKEDA-2024TUS067139

PATIENT
  Age: 28 Year
  Sex: Female
  Weight: 49.8 kg

DRUGS (40)
  1. GLASSIA [Suspect]
     Active Substance: .ALPHA.1-PROTEINASE INHIBITOR HUMAN
     Indication: Alpha-1 antitrypsin deficiency
     Dosage: 60 MILLIGRAM/KILOGRAM, 1/WEEK
     Dates: start: 20240610
  2. GLASSIA [Suspect]
     Active Substance: .ALPHA.1-PROTEINASE INHIBITOR HUMAN
  3. EPINEPHRINE [Concomitant]
     Active Substance: EPINEPHRINE
  4. MIDODRINE HYDROCHLORIDE [Concomitant]
     Active Substance: MIDODRINE HYDROCHLORIDE
  5. MIDODRINE HYDROCHLORIDE [Concomitant]
     Active Substance: MIDODRINE HYDROCHLORIDE
     Dosage: 10 MILLIGRAM, TID
     Dates: end: 20240614
  6. ALBUTEROL\IPRATROPIUM [Concomitant]
     Active Substance: ALBUTEROL\IPRATROPIUM
  7. FOLIC ACID [Concomitant]
     Active Substance: FOLIC ACID
  8. FOLIC ACID [Concomitant]
     Active Substance: FOLIC ACID
  9. GEMTESA [Concomitant]
     Active Substance: VIBEGRON
  10. SODIUM CHLORIDE [Concomitant]
     Active Substance: SODIUM CHLORIDE
  11. SERTRALINE HYDROCHLORIDE [Concomitant]
     Active Substance: SERTRALINE HYDROCHLORIDE
  12. SERTRALINE HYDROCHLORIDE [Concomitant]
     Active Substance: SERTRALINE HYDROCHLORIDE
     Dosage: 150 MILLIGRAM, QD
  13. CLONAZEPAM [Concomitant]
     Active Substance: CLONAZEPAM
  14. ALBUTEROL SULFATE [Concomitant]
     Active Substance: ALBUTEROL SULFATE
     Dosage: UNK UNK, Q4HR
  15. LAMICTAL [Concomitant]
     Active Substance: LAMOTRIGINE
  16. COMPAZINE [Concomitant]
     Active Substance: PROCHLORPERAZINE MALEATE
     Indication: Headache
  17. COMPAZINE [Concomitant]
     Active Substance: PROCHLORPERAZINE MALEATE
     Dosage: 10 MILLIGRAM, Q8HR
     Dates: start: 20240529, end: 20240715
  18. POTASSIUM CITRATE [Concomitant]
     Active Substance: POTASSIUM CITRATE
  19. MONTELUKAST SODIUM [Concomitant]
     Active Substance: MONTELUKAST SODIUM
  20. MONTELUKAST SODIUM [Concomitant]
     Active Substance: MONTELUKAST SODIUM
     Dosage: 10 MILLIGRAM, QD
     Dates: start: 20240528, end: 20240723
  21. FLUDROCORTISONE ACETATE [Concomitant]
     Active Substance: FLUDROCORTISONE ACETATE
  22. FLUDROCORTISONE ACETATE [Concomitant]
     Active Substance: FLUDROCORTISONE ACETATE
     Dosage: 0.1 MILLIGRAM, BID
     Dates: end: 20240414
  23. Lmx [Concomitant]
  24. ONDANSETRON HYDROCHLORIDE [Concomitant]
     Active Substance: ONDANSETRON HYDROCHLORIDE
     Indication: Nausea
     Dosage: 4 MILLIGRAM, Q4HR
  25. ONDANSETRON HYDROCHLORIDE [Concomitant]
     Active Substance: ONDANSETRON HYDROCHLORIDE
     Indication: Vomiting
  26. LYSINE [Concomitant]
     Active Substance: LYSINE
  27. UBRELVY [Concomitant]
     Active Substance: UBROGEPANT
  28. DIPHENHYDRAMINE HYDROCHLORIDE [Concomitant]
     Active Substance: DIPHENHYDRAMINE HYDROCHLORIDE
  29. ASPIRIN [Concomitant]
     Active Substance: ASPIRIN
  30. BUTALBITAL, ACETAMINOPHEN, AND CAFFEINE [Concomitant]
     Active Substance: ACETAMINOPHEN\BUTALBITAL\CAFFEINE
  31. LORAZEPAM [Concomitant]
     Active Substance: LORAZEPAM
  32. FORMOTEROL FUMARATE\MOMETASONE FUROATE [Concomitant]
     Active Substance: FORMOTEROL FUMARATE\MOMETASONE FUROATE
  33. OMEPRAZOLE [Concomitant]
     Active Substance: OMEPRAZOLE
  34. PROMETHAZINE [Concomitant]
     Active Substance: PROMETHAZINE HYDROCHLORIDE
     Indication: Nausea
     Dosage: UNK UNK, Q6HR
  35. TRAZODONE [Concomitant]
     Active Substance: TRAZODONE HYDROCHLORIDE
  36. FLUTICASONE PROPIONATE\SALMETEROL XINAFOATE [Concomitant]
     Active Substance: FLUTICASONE PROPIONATE\SALMETEROL XINAFOATE
  37. AIMOVIG [Concomitant]
     Active Substance: ERENUMAB-AOOE
  38. HEPARIN [Concomitant]
     Active Substance: HEPARIN SODIUM
  39. LIDOCAINE [Concomitant]
     Active Substance: LIDOCAINE
  40. GABAPENTIN [Concomitant]
     Active Substance: GABAPENTIN

REACTIONS (7)
  - Seizure [Recovering/Resolving]
  - Syncope [Unknown]
  - Postoperative wound infection [Unknown]
  - COVID-19 [Unknown]
  - Migraine [Unknown]
  - Malaise [Unknown]
  - Headache [Unknown]

NARRATIVE: CASE EVENT DATE: 20241216
